APPROVED DRUG PRODUCT: POLYMYXIN B SULFATE
Active Ingredient: POLYMYXIN B SULFATE
Strength: EQ 500,000 UNITS BASE/VIAL
Dosage Form/Route: INJECTABLE;INJECTION
Application: A207322 | Product #001 | TE Code: AP
Applicant: GLAND PHARMA LTD
Approved: Apr 14, 2016 | RLD: No | RS: No | Type: RX